FAERS Safety Report 9443035 (Version 4)
Quarter: 2020Q3

REPORT INFORMATION
  Report Type: Report from Study
  Country: CA (occurrence: CA)
  Receive Date: 20130806
  Receipt Date: 20200803
  Transmission Date: 20201103
  Serious: Yes (Hospitalization)
  Sender: FDA-Public Use
  Company Number: PHHY2013CA071604

PATIENT
  Age: 39 Year
  Sex: Female

DRUGS (5)
  1. ACIDOPHILUS [Concomitant]
     Active Substance: LACTOBACILLUS ACIDOPHILUS
     Indication: PRODUCT USED FOR UNKNOWN INDICATION
     Route: 065
  2. SANDOSTATIN LAR DEPOT [Suspect]
     Active Substance: OCTREOTIDE ACETATE
     Dosage: 20 MG, QMO (EVERY 4 WEEKS)
     Route: 030
     Dates: start: 20150202
  3. SANDOSTATIN LAR DEPOT [Suspect]
     Active Substance: OCTREOTIDE ACETATE
     Dosage: 30 MG, QMO (EVERY 4 WEEKS)
     Route: 030
  4. SANDOSTATIN LAR DEPOT [Suspect]
     Active Substance: OCTREOTIDE ACETATE
     Dosage: 20 MG, QMO (EVERY 4 WEEKS)
     Route: 030
     Dates: start: 20180827
  5. SANDOSTATIN LAR DEPOT [Suspect]
     Active Substance: OCTREOTIDE ACETATE
     Indication: ACROMEGALY
     Dosage: 30 MG, QMO (EVERY 4 WEEKS)
     Route: 030
     Dates: start: 20130529

REACTIONS (25)
  - Oropharyngeal pain [Unknown]
  - Inappropriate antidiuretic hormone secretion [Recovered/Resolved]
  - Arthralgia [Unknown]
  - Pain [Unknown]
  - Hyperhidrosis [Unknown]
  - Injection site bruising [Unknown]
  - Pain in extremity [Unknown]
  - Gastrointestinal tract mucosal pigmentation [Unknown]
  - Nausea [Unknown]
  - Vomiting [Unknown]
  - Injection site mass [Unknown]
  - Malaise [Not Recovered/Not Resolved]
  - Haematoma [Recovering/Resolving]
  - Injection site warmth [Unknown]
  - Movement disorder [Unknown]
  - Viral infection [Unknown]
  - Headache [Unknown]
  - Injection site erythema [Recovered/Resolved]
  - Swelling [Unknown]
  - Needle issue [Unknown]
  - Injection site swelling [Recovered/Resolved]
  - Product dose omission issue [Unknown]
  - Blood growth hormone increased [Unknown]
  - Alopecia [Unknown]
  - Injection site pain [Recovering/Resolving]

NARRATIVE: CASE EVENT DATE: 20140523
